FAERS Safety Report 11251463 (Version 1)
Quarter: 2015Q3

REPORT INFORMATION
  Report Type: Spontaneous
  Country: US (occurrence: US)
  Receive Date: 20150708
  Receipt Date: 20150708
  Transmission Date: 20151125
  Serious: No
  Sender: FDA-Public Use
  Company Number: US-ELI_LILLY_AND_COMPANY-US201111008257

PATIENT
  Age: 61 Year
  Sex: Female
  Weight: 118 kg

DRUGS (5)
  1. FOLATE [Concomitant]
     Active Substance: FOLATE SODIUM
     Dosage: 400 UNK, UNK
     Route: 048
     Dates: start: 20110927
  2. DECADRON [Concomitant]
     Active Substance: DEXAMETHASONE
     Dosage: 4 MG, BID
     Route: 048
  3. VITAMIN B12 [Concomitant]
     Active Substance: CYANOCOBALAMIN
     Dosage: 1000 UG, UNK
     Route: 042
     Dates: start: 20110927
  4. CARBOPLATIN. [Concomitant]
     Active Substance: CARBOPLATIN
     Dosage: UNK
     Dates: start: 2011
  5. ALIMTA [Suspect]
     Active Substance: PEMETREXED DISODIUM
     Indication: LUNG CARCINOMA CELL TYPE UNSPECIFIED STAGE IV
     Dosage: 1050 MG, EVERY 3 WEEKS
     Route: 042
     Dates: start: 20111004, end: 20120207

REACTIONS (1)
  - Deafness bilateral [Not Recovered/Not Resolved]
